FAERS Safety Report 5804923-8 (Version None)
Quarter: 2008Q3

REPORT INFORMATION
  Report Type: 
  Country: None (occurrence: None)
  Receive Date: 20080709
  Receipt Date: 20080707
  Transmission Date: 20090109
  Serious: Yes (Death, Hospitalization)
  Sender: FDA-Public Use
  Company Number: PHFR2003GB03297

PATIENT
  Sex: Male

DRUGS (1)
  1. CLOZARIL [Suspect]
     Indication: SCHIZOPHRENIA
     Dosage: 350MG/DAY
     Route: 048
     Dates: start: 20010410

REACTIONS (9)
  - ABDOMINAL DISTENSION [None]
  - APPENDICITIS [None]
  - CARDIAC ARREST [None]
  - CONSTIPATION [None]
  - CRANIAL NERVE NEOPLASM BENIGN [None]
  - ILEUS PARALYTIC [None]
  - OBSTRUCTION [None]
  - PERITONITIS [None]
  - VOMITING [None]
